FAERS Safety Report 4946018-1 (Version None)
Quarter: 2006Q1

REPORT INFORMATION
  Report Type: 
  Country: None (occurrence: None)
  Receive Date: 20060316
  Receipt Date: 20020730
  Transmission Date: 20060701
  Serious: Yes (Hospitalization, Disabling)
  Sender: FDA-Public Use
  Company Number: US-MERCK-0208USA01257

PATIENT
  Age: 59 Year
  Sex: Female
  Weight: 80 kg

DRUGS (1)
  1. VIOXX [Suspect]
     Indication: ARTHROPATHY
     Route: 048
     Dates: start: 20020101

REACTIONS (22)
  - ANGINA PECTORIS [None]
  - ANXIETY [None]
  - AORTIC VALVE INCOMPETENCE [None]
  - ARTHROPATHY [None]
  - BRONCHOSPASM [None]
  - CARDIAC DISORDER [None]
  - CARDIAC MURMUR [None]
  - CORONARY ARTERY DISEASE [None]
  - DEPRESSION [None]
  - EYELID PTOSIS [None]
  - GASTROINTESTINAL DISORDER [None]
  - GASTROINTESTINAL HAEMORRHAGE [None]
  - GENERAL PHYSICAL HEALTH DETERIORATION [None]
  - HEADACHE [None]
  - HYSTERECTOMY [None]
  - IRON DEFICIENCY ANAEMIA [None]
  - JOINT INJURY [None]
  - KNEE ARTHROPLASTY [None]
  - LACRIMATION INCREASED [None]
  - MITRAL VALVE INCOMPETENCE [None]
  - OVERDOSE [None]
  - SINUS BRADYCARDIA [None]
